FAERS Safety Report 8858739 (Version 1)
Quarter: 2012Q4

REPORT INFORMATION
  Report Type: Spontaneous
  Country: US (occurrence: None)
  Receive Date: 20121023
  Receipt Date: 20121023
  Transmission Date: 20130627
  Serious: Yes (Hospitalization, Other)
  Sender: FDA-Public Use
  Company Number: None

PATIENT
  Age: 7 Month
  Sex: Female
  Weight: 8.39 kg

DRUGS (1)
  1. HYLAND^S TEETHING TABLETS [Suspect]
     Indication: TEETHING
     Dosage: 1-2 tablets   2-3 times per day  po
     Route: 048
     Dates: start: 20090909, end: 20091025

REACTIONS (3)
  - Infantile spasms [None]
  - Convulsion [None]
  - Incorrect dose administered [None]
